FAERS Safety Report 20065178 (Version 1)
Quarter: 2021Q4

REPORT INFORMATION
  Report Type: Spontaneous
  Country: CA (occurrence: CA)
  Receive Date: 20211113
  Receipt Date: 20211113
  Transmission Date: 20220304
  Serious: Yes (Hospitalization)
  Sender: FDA-Public Use
  Company Number: CA-ABBVIE-21K-028-4156984-00

PATIENT
  Age: 41 Year
  Sex: Female
  Weight: 55 kg

DRUGS (22)
  1. HUMIRA [Suspect]
     Active Substance: ADALIMUMAB
     Indication: Product used for unknown indication
     Route: 058
     Dates: start: 2011, end: 202006
  2. IMURAN [Suspect]
     Active Substance: AZATHIOPRINE
     Indication: Product used for unknown indication
     Route: 065
  3. STELARA [Suspect]
     Active Substance: USTEKINUMAB
     Indication: Product used for unknown indication
     Route: 065
     Dates: start: 202009, end: 20210909
  4. PROCTOFOAM [Suspect]
     Active Substance: PRAMOXINE HYDROCHLORIDE
     Indication: Product used for unknown indication
     Route: 065
  5. AMINOSALICYLIC ACID [Suspect]
     Active Substance: AMINOSALICYLIC ACID
     Indication: Product used for unknown indication
     Route: 065
  6. BETAMETHASONE SODIUM PHOSPHATE [Suspect]
     Active Substance: BETAMETHASONE SODIUM PHOSPHATE
     Indication: Product used for unknown indication
     Route: 065
  7. COVID-19 VACCINE [Concomitant]
     Indication: COVID-19 prophylaxis
     Dosage: FIRST DOSE
     Dates: start: 2021, end: 2021
  8. COVID-19 VACCINE [Concomitant]
     Dosage: SECOND DOSE
     Dates: start: 202107, end: 202107
  9. REMICADE [Concomitant]
     Active Substance: INFLIXIMAB
     Indication: Product used for unknown indication
     Dates: start: 2009
  10. METHOTREXATE [Concomitant]
     Active Substance: METHOTREXATE
     Indication: Product used for unknown indication
  11. PREDNISONE [Concomitant]
     Active Substance: PREDNISONE
     Indication: Product used for unknown indication
     Dates: start: 201709
  12. REMERON [Concomitant]
     Active Substance: MIRTAZAPINE
     Indication: Product used for unknown indication
  13. SULFASALAZINE [Concomitant]
     Active Substance: SULFASALAZINE
     Indication: Product used for unknown indication
     Dates: start: 202109
  14. TUMS [Concomitant]
     Active Substance: CALCIUM CARBONATE
     Indication: Product used for unknown indication
  15. VITAMIN D [Concomitant]
     Active Substance: VITAMIN D NOS
     Indication: Product used for unknown indication
  16. ZOPICLONE [Concomitant]
     Active Substance: ZOPICLONE
     Indication: Product used for unknown indication
  17. NYSTATIN [Concomitant]
     Active Substance: NYSTATIN
     Indication: Product used for unknown indication
  18. FOLIC ACID [Concomitant]
     Active Substance: FOLIC ACID
     Indication: Product used for unknown indication
  19. REMERON [Concomitant]
     Active Substance: MIRTAZAPINE
     Indication: Product used for unknown indication
  20. LACTASE [Concomitant]
     Active Substance: LACTASE
     Indication: Product used for unknown indication
  21. LORAZEPAM [Concomitant]
     Active Substance: LORAZEPAM
     Indication: Product used for unknown indication
  22. XELJANZ [Concomitant]
     Active Substance: TOFACITINIB CITRATE
     Indication: Colitis ulcerative
     Dates: start: 20210924

REACTIONS (18)
  - Gastrointestinal disorder [Unknown]
  - Drug ineffective [Unknown]
  - Drug ineffective [Unknown]
  - Colitis [Not Recovered/Not Resolved]
  - Rectal discharge [Not Recovered/Not Resolved]
  - Muscle spasms [Unknown]
  - Acrochordon [Not Recovered/Not Resolved]
  - Haemorrhoids [Not Recovered/Not Resolved]
  - Red blood cell count decreased [Not Recovered/Not Resolved]
  - Gastrointestinal disorder [Recovered/Resolved]
  - Haemoglobin decreased [Not Recovered/Not Resolved]
  - Maternal exposure during pregnancy [Unknown]
  - Crohn^s disease [Unknown]
  - Iron deficiency anaemia [Unknown]
  - Anxiety [Unknown]
  - Normocytic anaemia [Unknown]
  - Hepatic enzyme increased [Unknown]
  - Frequent bowel movements [Unknown]

NARRATIVE: CASE EVENT DATE: 20210901
